FAERS Safety Report 5071499-5 (Version None)
Quarter: 2006Q3

REPORT INFORMATION
  Report Type: 
  Country: None (occurrence: None)
  Receive Date: 20060803
  Receipt Date: 20060803
  Transmission Date: 20061208
  Serious: Yes (Hospitalization)
  Sender: FDA-Public Use
  Company Number: None

PATIENT
  Age: 74 Year
  Sex: Male
  Weight: 64 kg

DRUGS (3)
  1. FELODIPINE [Suspect]
     Indication: HYPERTENSION
     Dosage: 10 MG PO DAILY
     Route: 048
     Dates: start: 20060408, end: 20060419
  2. DILTIAZEM HCL [Suspect]
     Indication: HYPERTENSION
     Dosage: 180 MG PO DAILY
     Route: 048
     Dates: start: 20060418, end: 20060419
  3. CARVEDILOL [Suspect]
     Indication: CARDIAC FAILURE CONGESTIVE
     Dosage: 6.25 MG PO BID
     Route: 048
     Dates: start: 20060418

REACTIONS (4)
  - BLOOD PRESSURE DIASTOLIC DECREASED [None]
  - BRADYCARDIA [None]
  - NAUSEA [None]
  - VISION BLURRED [None]
